FAERS Safety Report 7408522-6 (Version None)
Quarter: 2011Q2

REPORT INFORMATION
  Report Type: 
  Country: None (occurrence: None)
  Receive Date: 20110401
  Receipt Date: 20110331
  Transmission Date: 20111010
  Serious: Yes (Other)
  Sender: FDA-Public Use
  Company Number: 1022556-2011-00009

PATIENT
  Sex: Male
  Weight: 99.7913 kg

DRUGS (6)
  1. VICODIN [Concomitant]
  2. PREDNISONE [Concomitant]
  3. CALADRYL [Concomitant]
  4. UNIKNOWN ANTIBIOTIC THERAPY [Concomitant]
  5. ICY HOT NO MESS APPLICATOR 2.5 OZ [Suspect]
     Indication: MYALGIA
     Dosage: TOPICAL ONCE
     Route: 061
  6. LYRICA [Concomitant]

REACTIONS (4)
  - APPLICATION SITE BURN [None]
  - APPLICATION SITE VESICLES [None]
  - APPLICATION SITE SCAB [None]
  - APPLICATION SITE RASH [None]
